FAERS Safety Report 9948201 (Version 2)
Quarter: 2014Q1

REPORT INFORMATION
  Report Type: Report from Study
  Country: US (occurrence: US)
  Receive Date: 20140303
  Receipt Date: 20140303
  Transmission Date: 20141002
  Serious: No
  Sender: FDA-Public Use
  Company Number: US-ABBVIE-13P-163-1039946-00

PATIENT
  Age: 51 Year
  Sex: Female

DRUGS (19)
  1. HUMIRA [Suspect]
     Indication: PSORIASIS
     Route: 058
     Dates: start: 20121123
  2. HUMALOG INSULIN PUMP [Concomitant]
     Indication: TYPE 1 DIABETES MELLITUS
  3. SYNTHROID [Concomitant]
     Indication: THYROID DISORDER
  4. LIOTHYRONINE SODIUM [Concomitant]
     Indication: THYROID DISORDER
  5. LOVASTATIN [Concomitant]
     Indication: BLOOD CHOLESTEROL
  6. VALTREX [Concomitant]
     Indication: HERPES VIRUS INFECTION
  7. TOPIRAMATE [Concomitant]
     Indication: MIGRAINE
  8. NORTRIPTYLINE [Concomitant]
     Indication: MIGRAINE
  9. SERTRALINE [Concomitant]
     Indication: DEPRESSION
  10. NEURONTIN [Concomitant]
     Indication: PAIN
  11. HYDROCODONE [Concomitant]
     Indication: PAIN
  12. MELOXICAM [Concomitant]
     Indication: PAIN
  13. LIDODERM [Concomitant]
     Indication: PAIN
     Dosage: PATCH
  14. VOLTAREN [Concomitant]
     Indication: PAIN
  15. MECLIZINE [Concomitant]
     Indication: VERTIGO
  16. DIAZEPAM [Concomitant]
     Indication: ANXIETY
  17. ASPIRIN [Concomitant]
     Indication: PRODUCT USED FOR UNKNOWN INDICATION
  18. ALEVE [Concomitant]
     Indication: HEADACHE
  19. EYE DROPS [Concomitant]
     Indication: HYPERSENSITIVITY

REACTIONS (16)
  - Hyperhidrosis [Not Recovered/Not Resolved]
  - Injection site pain [Not Recovered/Not Resolved]
  - Dizziness [Not Recovered/Not Resolved]
  - Fatigue [Not Recovered/Not Resolved]
  - Sinus headache [Not Recovered/Not Resolved]
  - Sinus congestion [Not Recovered/Not Resolved]
  - Nausea [Not Recovered/Not Resolved]
  - Ear pain [Not Recovered/Not Resolved]
  - Night sweats [Not Recovered/Not Resolved]
  - Oropharyngeal pain [Not Recovered/Not Resolved]
  - Migraine [Not Recovered/Not Resolved]
  - Vomiting [Not Recovered/Not Resolved]
  - Malaise [Not Recovered/Not Resolved]
  - Injection site pain [Not Recovered/Not Resolved]
  - Nausea [Recovered/Resolved]
  - Vomiting [Recovered/Resolved]
